FAERS Safety Report 20411179 (Version 1)
Quarter: 2022Q1

REPORT INFORMATION
  Report Type: Spontaneous
  Country: US (occurrence: None)
  Receive Date: 20220201
  Receipt Date: 20220201
  Transmission Date: 20220423
  Serious: Yes (Other)
  Sender: FDA-Public Use
  Company Number: None

PATIENT
  Age: 52 Year
  Sex: Female
  Weight: 80.1 kg

DRUGS (1)
  1. BUPRENORPHINE TRANSDERMAL SYSTEM [Suspect]
     Active Substance: BUPRENORPHINE
     Indication: Back pain
     Dosage: OTHER QUANTITY : 1 PATCH(ES);?OTHER FREQUENCY : EVERY 7 DAYS;?
     Route: 062
     Dates: start: 20220105, end: 20220128

REACTIONS (5)
  - Application site rash [None]
  - Application site pain [None]
  - Application site pruritus [None]
  - Application site pain [None]
  - Application site scar [None]

NARRATIVE: CASE EVENT DATE: 20220129
